FAERS Safety Report 5764625-3 (Version None)
Quarter: 2008Q2

REPORT INFORMATION
  Report Type: 
  Country: None (occurrence: None)
  Receive Date: 20080611
  Receipt Date: 20080509
  Transmission Date: 20081010
  Serious: No
  Sender: FDA-Public Use
  Company Number: US-BAYER-US-2007-037538

PATIENT
  Age: 36 Year
  Sex: Female
  Weight: 82 kg

DRUGS (1)
  1. ULTRAVIST 370 [Suspect]
     Indication: COMPUTERISED TOMOGRAM
     Dosage: TOTAL DAILY DOSE: 70 ML
     Route: 042
     Dates: start: 20071003, end: 20071003

REACTIONS (3)
  - NON-CARDIAC CHEST PAIN [None]
  - PARAESTHESIA ORAL [None]
  - PHARYNGEAL OEDEMA [None]
